FAERS Safety Report 9851373 (Version 2)
Quarter: 2014Q2

REPORT INFORMATION
  Report Type: Report from Study
  Country: MX (occurrence: MX)
  Receive Date: 20140129
  Receipt Date: 20140609
  Transmission Date: 20141212
  Serious: Yes (Disabling)
  Sender: FDA-Public Use
  Company Number: MX-ROCHE-1338785

PATIENT
  Sex: Female

DRUGS (2)
  1. RANIBIZUMAB [Suspect]
     Indication: MACULAR DEGENERATION
     Dosage: QUARTERLY
     Route: 050
     Dates: start: 201301
  2. PIOGLITAZONE [Concomitant]
     Indication: DIABETES MELLITUS
     Route: 065
     Dates: start: 2004

REACTIONS (1)
  - Blindness [Not Recovered/Not Resolved]
